APPROVED DRUG PRODUCT: NIZORAL
Active Ingredient: KETOCONAZOLE
Strength: 100MG/5ML
Dosage Form/Route: SUSPENSION;ORAL
Application: A070767 | Product #001
Applicant: JANSSEN PHARMACEUTICA PRODUCTS LP
Approved: Nov 7, 1986 | RLD: No | RS: No | Type: DISCN